FAERS Safety Report 7620603-0 (Version None)
Quarter: 2011Q3

REPORT INFORMATION
  Report Type: 
  Country: None (occurrence: None)
  Receive Date: 20110719
  Receipt Date: 20110705
  Transmission Date: 20111222
  Serious: Yes (Hospitalization)
  Sender: FDA-Public Use
  Company Number: US-SANOFI-AVENTIS-2011SA044149

PATIENT
  Sex: Female
  Weight: 80 kg

DRUGS (8)
  1. FUROSEMIDE [Concomitant]
     Route: 065
     Dates: start: 20101118, end: 20101118
  2. GLYBURIDE [Concomitant]
     Route: 065
  3. DRONEDARONE HCL [Suspect]
     Indication: ATRIAL FIBRILLATION
     Route: 048
     Dates: start: 20101110
  4. SIMVASTATIN [Concomitant]
     Route: 065
  5. ATENOLOL [Concomitant]
     Route: 065
  6. FUROSEMIDE [Concomitant]
     Route: 065
  7. LISINOPRIL [Concomitant]
     Route: 065
  8. WARFARIN SODIUM [Concomitant]
     Route: 065

REACTIONS (1)
  - CARDIAC FAILURE [None]
